FAERS Safety Report 5726600-4 (Version None)
Quarter: 2008Q2

REPORT INFORMATION
  Report Type: 
  Country: None (occurrence: None)
  Receive Date: 20080502
  Receipt Date: 20080430
  Transmission Date: 20081010
  Serious: Yes (Other)
  Sender: FDA-Public Use
  Company Number: US-TEVA-171011USA

PATIENT
  Sex: Female

DRUGS (2)
  1. HYDROCHLOROTHIAZIDE [Suspect]
     Indication: FLUID RETENTION
     Route: 048
     Dates: start: 20071001, end: 20080401
  2. VINORELBINE [Concomitant]

REACTIONS (2)
  - DYSPNOEA [None]
  - TRACHEAL OBSTRUCTION [None]
